FAERS Safety Report 6117606-4 (Version None)
Quarter: 2009Q1

REPORT INFORMATION
  Report Type: 
  Country: None (occurrence: None)
  Receive Date: 20090314
  Receipt Date: 20090123
  Transmission Date: 20090719
  Serious: Yes (Hospitalization)
  Sender: FDA-Public Use
  Company Number: US-ABBOTT-09P-163-0499716-00

PATIENT
  Sex: Female
  Weight: 54.934 kg

DRUGS (16)
  1. HUMIRA [Suspect]
     Indication: RHEUMATOID ARTHRITIS
     Route: 058
     Dates: start: 20070801
  2. HUMIRA [Suspect]
     Route: 058
     Dates: start: 20081102
  3. HUMIRA [Suspect]
     Dates: start: 20090125
  4. DIOVAN [Concomitant]
     Indication: HYPERTENSION
     Route: 048
  5. SOMA [Concomitant]
     Indication: ARTHRALGIA
     Route: 048
  6. METHOTREXATE [Concomitant]
     Indication: RHEUMATOID ARTHRITIS
     Route: 048
  7. FOLIC ACID [Concomitant]
     Indication: DRUG USE FOR UNKNOWN INDICATION
     Route: 048
  8. EVISTA [Concomitant]
     Indication: OSTEOPOROSIS
     Route: 048
  9. DOCUSATE [Concomitant]
     Indication: DRUG USE FOR UNKNOWN INDICATION
     Dosage: UNSURE OF STRENGTH
     Route: 048
  10. VICODIN [Concomitant]
     Indication: PAIN
     Route: 048
     Dates: start: 20090102
  11. ZYRTEC [Concomitant]
     Indication: HYPERSENSITIVITY
     Route: 048
  12. ALLEGRA [Concomitant]
     Indication: HYPERSENSITIVITY
     Route: 048
  13. CALCIUM VIT D [Concomitant]
     Indication: VITAMIN SUPPLEMENTATION
     Route: 048
  14. MULTI-VITAMIN [Concomitant]
     Indication: VITAMIN SUPPLEMENTATION
     Route: 048
  15. FLONASE [Concomitant]
     Indication: HYPERSENSITIVITY
     Route: 045
  16. ADVAIR HFA [Concomitant]
     Indication: RESPIRATORY TRACT CONGESTION
     Route: 055

REACTIONS (4)
  - BRONCHITIS [None]
  - CHOLELITHIASIS [None]
  - SINUSITIS [None]
  - URTICARIA [None]
